APPROVED DRUG PRODUCT: LEVOCARNITINE
Active Ingredient: LEVOCARNITINE
Strength: 200MG/ML
Dosage Form/Route: INJECTABLE;INJECTION
Application: A075567 | Product #001 | TE Code: AP
Applicant: HIKMA PHARMACEUTICALS USA INC
Approved: Mar 29, 2001 | RLD: No | RS: No | Type: RX